FAERS Safety Report 8238774-4 (Version None)
Quarter: 2012Q1

REPORT INFORMATION
  Report Type: 
  Country: None (occurrence: None)
  Receive Date: 20120327
  Receipt Date: 20120316
  Transmission Date: 20120608
  Serious: Yes (Hospitalization)
  Sender: FDA-Public Use
  Company Number: FR-JNJFOC-20110202008

PATIENT
  Age: 61 Year
  Sex: Male
  Weight: 87 kg

DRUGS (11)
  1. ATORVASTATIN [Concomitant]
  2. VALGANCICLOVIR [Concomitant]
  3. ACETAMINOPHEN [Concomitant]
  4. PIPERACILLIN AND TAZOBACTAM [Concomitant]
  5. FLUCONAZOLE [Concomitant]
  6. REMICADE [Suspect]
     Indication: COLITIS ULCERATIVE
     Dosage: 760 MG
     Route: 042
     Dates: start: 20101026
  7. PLAVIX [Concomitant]
  8. NEBIVOLOL HCL [Concomitant]
  9. MORPHINE [Concomitant]
     Dosage: 30 MG/24 H AND ADDITIONAL DOSE IF NEEDED 3 MG
  10. REMICADE [Suspect]
     Dosage: 760 MG
     Route: 042
  11. RAMIPRIL [Concomitant]

REACTIONS (4)
  - COLITIS ULCERATIVE [None]
  - ILEOCOLOSTOMY [None]
  - COLECTOMY [None]
  - ILEOSTOMY [None]
